FAERS Safety Report 12463979 (Version 2)
Quarter: 2016Q3

REPORT INFORMATION
  Report Type: Report from Study
  Country: US (occurrence: US)
  Receive Date: 20160614
  Receipt Date: 20160722
  Transmission Date: 20161109
  Serious: Yes (Hospitalization, Other)
  Sender: FDA-Public Use
  Company Number: US-BAYER-2016-061220

PATIENT
  Age: 60 Year
  Sex: Female
  Weight: 88.5 kg

DRUGS (7)
  1. TRAZODONE [Concomitant]
     Active Substance: TRAZODONE HYDROCHLORIDE
     Indication: INSOMNIA
  2. ONDANSETRON [Concomitant]
     Active Substance: ONDANSETRON
     Indication: NAUSEA
     Dosage: 4 MG, Q8HR
  3. FUROSEMIDE. [Concomitant]
     Active Substance: FUROSEMIDE
     Indication: ASCITES
  4. SPIRONOLACTON [Concomitant]
     Active Substance: SPIRONOLACTONE
     Indication: ASCITES
  5. NEXAVAR [Suspect]
     Active Substance: SORAFENIB
     Indication: HEPATOCELLULAR CARCINOMA
     Dosage: 400 MG, QD
     Route: 048
     Dates: start: 20160211, end: 201605
  6. NEXAVAR [Suspect]
     Active Substance: SORAFENIB
     Indication: HEPATOCELLULAR CARCINOMA
     Dosage: 400 MG, QD
     Route: 048
     Dates: start: 2016
  7. NORCO [Concomitant]
     Active Substance: ACETAMINOPHEN\HYDROCODONE BITARTRATE
     Indication: ARTHRITIS

REACTIONS (13)
  - Hepatic cirrhosis [None]
  - Haemorrhage [None]
  - Asthenia [Not Recovered/Not Resolved]
  - Jaundice [None]
  - Weight decreased [None]
  - Haemorrhoidal haemorrhage [None]
  - Fatigue [None]
  - Drug dose omission [None]
  - Incoherent [None]
  - Alpha 1 foetoprotein abnormal [None]
  - Fall [None]
  - Gastrointestinal haemorrhage [Recovered/Resolved]
  - Abdominal pain upper [None]

NARRATIVE: CASE EVENT DATE: 2016
